FAERS Safety Report 4981270-8 (Version None)
Quarter: 2006Q1

REPORT INFORMATION
  Report Type: 
  Country: None (occurrence: None)
  Receive Date: 20060227
  Receipt Date: 20050105
  Transmission Date: 20060701
  Serious: Yes (Hospitalization, Disabling, Other)
  Sender: FDA-Public Use
  Company Number: WAES 0305USA01650

PATIENT
  Age: 58 Year
  Sex: Male
  Weight: 107.0489 kg

DRUGS (12)
  1. ZOCOR [Suspect]
     Indication: BLOOD CHOLESTEROL
     Dosage: 20 MG/DAILY/PO
     Route: 048
     Dates: start: 20021010, end: 20021125
  2. ZOCOR [Suspect]
     Indication: HYPERLIPIDAEMIA
     Dosage: 20 MG/DAILY/PO
     Route: 048
     Dates: start: 20021010, end: 20021125
  3. ACCUPRIL [Concomitant]
  4. ATIVAN [Concomitant]
  5. AVANDIA [Concomitant]
  6. CALAN [Concomitant]
  7. CLARITIN [Concomitant]
  8. ENDOCET [Concomitant]
  9. HUMIBID L.A. [Concomitant]
  10. VIAGRA [Concomitant]
  11. ZYLOPRIM [Concomitant]
  12. INDOMETHACIN [Concomitant]

REACTIONS (9)
  - BASAL CELL CARCINOMA [None]
  - DEPRESSION [None]
  - MYOPATHY [None]
  - NEUROPATHY PERIPHERAL [None]
  - NORMOCHROMIC NORMOCYTIC ANAEMIA [None]
  - PEPTIC ULCER [None]
  - POST POLIO SYNDROME [None]
  - RHABDOMYOLYSIS [None]
  - UPPER RESPIRATORY TRACT INFECTION [None]
